FAERS Safety Report 6007586-4 (Version None)
Quarter: 2008Q4

REPORT INFORMATION
  Report Type: 
  Country: None (occurrence: None)
  Receive Date: 20081217
  Receipt Date: 20080514
  Transmission Date: 20090506
  Serious: No
  Sender: FDA-Public Use
  Company Number: US-ASTRAZENECA-2008UW09966

PATIENT
  Age: 87 Year
  Sex: Male
  Weight: 86.2 kg

DRUGS (7)
  1. CRESTOR [Suspect]
     Indication: BLOOD CHOLESTEROL INCREASED
     Route: 048
  2. OMEPRAZOLE [Concomitant]
  3. BUPROPION HCL [Concomitant]
  4. PROSCAR [Concomitant]
  5. SYNTHROID [Concomitant]
  6. FELODIPINE [Concomitant]
  7. PLAVIX [Concomitant]

REACTIONS (2)
  - CHAPPED LIPS [None]
  - DEHYDRATION [None]
